FAERS Safety Report 12986649 (Version 2)
Quarter: 2017Q1

REPORT INFORMATION
  Report Type: Spontaneous
  Country: BR (occurrence: BR)
  Receive Date: 20161130
  Receipt Date: 20170317
  Transmission Date: 20170428
  Serious: Yes (Other)
  Sender: FDA-Public Use
  Company Number: BR-REGENERON PHARMACEUTICALS, INC.-2016-24382

PATIENT

DRUGS (1)
  1. EYLEA [Suspect]
     Active Substance: AFLIBERCEPT
     Indication: PRODUCT USED FOR UNKNOWN INDICATION
     Dosage: SHE RECEIVED A TOTAL OF 4 INJECTIONS.
     Route: 031

REACTIONS (3)
  - Eye infection [Recovering/Resolving]
  - Lens dislocation [Unknown]
  - Blindness transient [Recovering/Resolving]

NARRATIVE: CASE EVENT DATE: 2016
